FAERS Safety Report 19861578 (Version 1)
Quarter: 2021Q3

REPORT INFORMATION
  Report Type: Spontaneous
  Country: US (occurrence: US)
  Receive Date: 20210920
  Receipt Date: 20210920
  Transmission Date: 20211014
  Serious: No
  Sender: FDA-Public Use
  Company Number: US-PFIZER INC-2021285810

PATIENT
  Age: 66 Year
  Sex: Female
  Weight: 72.57 kg

DRUGS (2)
  1. CHANTIX [Suspect]
     Active Substance: VARENICLINE TARTRATE
     Dosage: 1MG, ONCE DAILY
  2. CHANTIX [Suspect]
     Active Substance: VARENICLINE TARTRATE
     Indication: SMOKING CESSATION THERAPY
     Dosage: 1 MG, DAILY (1MG A DAY)
     Dates: start: 202010

REACTIONS (7)
  - Abnormal dreams [Unknown]
  - Lip dry [Unknown]
  - Nightmare [Unknown]
  - Therapeutic response unexpected [Unknown]
  - Chapped lips [Unknown]
  - Thirst [Unknown]
  - Abdominal distension [Unknown]
